FAERS Safety Report 24275343 (Version 2)
Quarter: 2024Q3

REPORT INFORMATION
  Report Type: Spontaneous
  Country: GB (occurrence: GB)
  Receive Date: 20240903
  Receipt Date: 20240918
  Transmission Date: 20241017
  Serious: Yes (Other)
  Sender: ADVANZ PHARMA
  Company Number: GB-MLMSERVICE-20240814-PI161923-00270-1

PATIENT

DRUGS (5)
  1. PREDNISOLONE [Suspect]
     Active Substance: PREDNISOLONE
     Dosage: 1 MG/KG (ON THE DAY PRIOR TO OA INFUSION)
     Route: 048
  2. PREDNISOLONE [Suspect]
     Active Substance: PREDNISOLONE
     Dosage: 1 MG/KG (W17)
     Route: 048
  3. PREDNISOLONE [Suspect]
     Active Substance: PREDNISOLONE
     Dosage: 2 MG/KG (AT WEEK 4)
     Route: 048
  4. PREDNISOLONE [Suspect]
     Active Substance: PREDNISOLONE
     Dosage: UNK (WEEK 9, SLOWLY WEANED)
     Route: 048
  5. ONASEMNOGENE ABEPARVOVEC [Concomitant]
     Active Substance: ONASEMNOGENE ABEPARVOVEC
     Indication: Spinal muscular atrophy
     Dosage: UNK

REACTIONS (4)
  - Greenstick fracture [Unknown]
  - Osteoporotic fracture [Unknown]
  - Tibia fracture [Unknown]
  - Hepatic enzyme abnormal [Unknown]
